FAERS Safety Report 7987936-X (Version None)
Quarter: 2011Q4

REPORT INFORMATION
  Report Type: 
  Country: None (occurrence: None)
  Receive Date: 20111216
  Receipt Date: 20101118
  Transmission Date: 20120403
  Serious: No
  Sender: FDA-Public Use
  Company Number: US-BRISTOL-MYERS SQUIBB COMPANY-15397185

PATIENT
  Age: 3 Decade
  Sex: Female

DRUGS (2)
  1. TOPAMAX [Suspect]
  2. ABILIFY [Suspect]

REACTIONS (3)
  - PALPITATIONS [None]
  - DYSPHAGIA [None]
  - SALIVARY HYPERSECRETION [None]
